FAERS Safety Report 13749057 (Version 2)
Quarter: 2017Q3

REPORT INFORMATION
  Report Type: Report from Study
  Country: JP (occurrence: JP)
  Receive Date: 20170713
  Receipt Date: 20170720
  Transmission Date: 20171127
  Serious: Yes (Hospitalization)
  Sender: FDA-Public Use
  Company Number: JP-PFIZER INC-2017294331

PATIENT
  Age: 59 Year
  Sex: Female
  Weight: 39 kg

DRUGS (4)
  1. TRAMCET [Suspect]
     Active Substance: ACETAMINOPHEN\TRAMADOL
     Indication: RHEUMATOID ARTHRITIS
     Dosage: 1 DF, 4 TIMES DAILY, AFTER BREAKFAST, LUNCH, AND SUPPER, AND AT BEDTIME
     Route: 048
     Dates: start: 20150713, end: 20170628
  2. ASP015K [Suspect]
     Active Substance: INVESTIGATIONAL PRODUCT
     Indication: RHEUMATOID ARTHRITIS
     Dosage: 100 MG, ONCE DAILY, AFTER BREAKFAST
     Route: 048
     Dates: start: 20170614, end: 20170628
  3. CELECOX [Suspect]
     Active Substance: CELECOXIB
     Indication: RHEUMATOID ARTHRITIS
     Dosage: 200 MG, TWICE DAILY, AFTER BREAKFAST AND SUPPER
     Route: 048
     Dates: start: 20150302, end: 20170628
  4. RHEUMATREX [Suspect]
     Active Substance: METHOTREXATE SODIUM
     Indication: RHEUMATOID ARTHRITIS
     Dosage: 2 MG, TWICE WEEKLY, AFTER BREAKFAST ON TUESDAY AND WEDNESDAY
     Route: 048
     Dates: start: 20160809, end: 20170628

REACTIONS (1)
  - Erysipelas [Recovered/Resolved]

NARRATIVE: CASE EVENT DATE: 20170629
